FAERS Safety Report 24779729 (Version 2)
Quarter: 2025Q1

REPORT INFORMATION
  Report Type: Report from Study
  Country: CA (occurrence: CA)
  Receive Date: 20241226
  Receipt Date: 20250121
  Transmission Date: 20250408
  Serious: Yes (Other)
  Sender: ABBVIE
  Company Number: CA-ABBVIE-6056290

PATIENT
  Age: 62 Year
  Sex: Male

DRUGS (1)
  1. SKYRIZI [Suspect]
     Active Substance: RISANKIZUMAB-RZAA
     Indication: Crohn^s disease
     Route: 058
     Dates: start: 20230810

REACTIONS (5)
  - Surgery [Unknown]
  - Drug ineffective [Recovered/Resolved]
  - Disease risk factor [Unknown]
  - Gastrointestinal inflammation [Recovered/Resolved]
  - Intestinal obstruction [Recovered/Resolved]
